FAERS Safety Report 9969194 (Version 2)
Quarter: 2014Q2

REPORT INFORMATION
  Report Type: Spontaneous
  Country: US (occurrence: US)
  Receive Date: 20140306
  Receipt Date: 20140423
  Transmission Date: 20141212
  Serious: No
  Sender: FDA-Public Use
  Company Number: US-009507513-1403USA002317

PATIENT
  Sex: Male

DRUGS (1)
  1. VYTORIN [Suspect]
     Indication: BLOOD CHOLESTEROL ABNORMAL
     Dosage: HALF TABLET DAILY
     Route: 048
     Dates: start: 2010

REACTIONS (3)
  - Wrong technique in drug usage process [Unknown]
  - Product physical issue [Unknown]
  - No adverse event [Unknown]
